FAERS Safety Report 10374466 (Version 2)
Quarter: 2015Q2

REPORT INFORMATION
  Report Type: Spontaneous
  Country: GB (occurrence: GB)
  Receive Date: 20140811
  Receipt Date: 20150414
  Transmission Date: 20150821
  Serious: Yes (Hospitalization)
  Sender: FDA-Public Use
  Company Number: GB-AMGEN-GBRSP2014059607

PATIENT
  Age: 77 Year
  Sex: Female

DRUGS (13)
  1. FORSTEO [Concomitant]
     Active Substance: TERIPARATIDE
     Dosage: 0.08 ML, BID
     Route: 058
  2. ORAMORPH SR SUSTAINED RELEASE [Concomitant]
     Active Substance: MORPHINE SULFATE
     Dosage: 10 MG, AS NECESSARY
     Route: 048
  3. SYMBICORT [Concomitant]
     Active Substance: BUDESONIDE\FORMOTEROL FUMARATE DIHYDRATE
     Dosage: 1 DF, BID
  4. TRUSOPT [Concomitant]
     Active Substance: DORZOLAMIDE HYDROCHLORIDE
     Dosage: 1 GTT, BID
  5. PROLIA [Suspect]
     Active Substance: DENOSUMAB
     Indication: OSTEOPOROSIS
     Dosage: 60 MUG, Q6MO
     Route: 058
     Dates: start: 20111222, end: 20140410
  6. PARACETAMOL [Concomitant]
     Active Substance: ACETAMINOPHEN
     Dosage: 1 G, AS NECESSARY
     Route: 048
  7. INDAPAMIDE. [Concomitant]
     Active Substance: INDAPAMIDE
     Dosage: 1.5 MG, UNK
  8. AMITRIPTYLINE [Concomitant]
     Active Substance: AMITRIPTYLINE
     Dosage: 25 MG, QD
  9. BIMATOPROST. [Concomitant]
     Active Substance: BIMATOPROST
     Dosage: 1GTT, QD
  10. LACTULOSE. [Concomitant]
     Active Substance: LACTULOSE
     Dosage: 15 ML, BID
  11. ADCAL D3 [Concomitant]
     Active Substance: CALCIUM CARBONATE\CHOLECALCIFEROL
     Dosage: 1 DF, QD
  12. BUDESONIDE. [Concomitant]
     Active Substance: BUDESONIDE
     Dosage: 100 MUG, BID
  13. TRAMADOL [Concomitant]
     Active Substance: TRAMADOL
     Indication: PAIN
     Dosage: 50 MG, AS NECESSARY

REACTIONS (1)
  - Aspergilloma [Not Recovered/Not Resolved]

NARRATIVE: CASE EVENT DATE: 201402
